FAERS Safety Report 10422652 (Version 2)
Quarter: 2014Q3

REPORT INFORMATION
  Report Type: Spontaneous
  Country: IN (occurrence: IN)
  Receive Date: 20140902
  Receipt Date: 20140902
  Transmission Date: 20150326
  Serious: Yes (Hospitalization)
  Sender: FDA-Public Use
  Company Number: IN-AUROBINDO-AUR-APL-2014-08398

PATIENT
  Age: 19 Year
  Sex: Male

DRUGS (11)
  1. RISPERIDONE. [Suspect]
     Active Substance: RISPERIDONE
     Indication: HALLUCINATION
     Route: 065
  2. OLANZAPINE. [Suspect]
     Active Substance: OLANZAPINE
     Indication: HALLUCINATION
  3. CLONAZEPAM. [Suspect]
     Active Substance: CLONAZEPAM
     Indication: DELUSION
     Route: 065
  4. LITHIUM [Suspect]
     Active Substance: LITHIUM CARBONATE
     Indication: HALLUCINATION
  5. DIVALPROEX [Suspect]
     Active Substance: DIVALPROEX SODIUM
     Indication: DELUSION
     Route: 065
  6. ONDANSETRON [Suspect]
     Active Substance: ONDANSETRON
     Indication: PRODUCT USED FOR UNKNOWN INDICATION
     Route: 065
  7. LITHIUM [Suspect]
     Active Substance: LITHIUM CARBONATE
     Indication: DELUSION
     Route: 065
  8. DIVALPROEX [Suspect]
     Active Substance: DIVALPROEX SODIUM
     Indication: HALLUCINATION
  9. OLANZAPINE. [Suspect]
     Active Substance: OLANZAPINE
     Indication: DELUSION
     Route: 065
  10. CLONAZEPAM. [Suspect]
     Active Substance: CLONAZEPAM
     Indication: HALLUCINATION
  11. RISPERIDONE. [Suspect]
     Active Substance: RISPERIDONE
     Indication: DELUSION

REACTIONS (31)
  - Agitation [Recovered/Resolved]
  - Unresponsive to stimuli [Recovered/Resolved]
  - Tachycardia [Recovered/Resolved]
  - Tetany [Recovered/Resolved]
  - Red blood cell sedimentation rate increased [Recovered/Resolved]
  - Delusion [Recovered/Resolved]
  - Hallucination [Recovered/Resolved]
  - Serotonin syndrome [Recovered/Resolved]
  - Neuroleptic malignant syndrome [Recovered/Resolved]
  - White blood cell count increased [Recovered/Resolved]
  - Off label use [Recovered/Resolved]
  - Clonus [Recovered/Resolved]
  - Blood calcium decreased [Recovered/Resolved]
  - Blood iron decreased [Recovered/Resolved]
  - Movement disorder [Recovered/Resolved]
  - Pneumonia [Unknown]
  - Diarrhoea [Recovered/Resolved]
  - Aggression [Recovered/Resolved]
  - Gastrointestinal sounds abnormal [Recovered/Resolved]
  - C-reactive protein increased [Recovered/Resolved]
  - Transaminases increased [Recovered/Resolved]
  - Haemoglobin decreased [Recovered/Resolved]
  - Tachypnoea [Recovered/Resolved]
  - Hyperreflexia [Recovered/Resolved]
  - Muscle rigidity [Recovered/Resolved]
  - Condition aggravated [Recovered/Resolved]
  - Hypophagia [Recovered/Resolved]
  - Chills [Recovered/Resolved]
  - Pyrexia [Recovered/Resolved]
  - Hyperhidrosis [Recovered/Resolved]
  - Blood creatine phosphokinase increased [Recovered/Resolved]
